FAERS Safety Report 23706333 (Version 1)
Quarter: 2024Q2

REPORT INFORMATION
  Report Type: Spontaneous
  Country: US (occurrence: US)
  Receive Date: 20240404
  Receipt Date: 20240404
  Transmission Date: 20240716
  Serious: Yes (Other)
  Sender: FDA-Public Use
  Company Number: US-JNJFOC-20240374555

PATIENT
  Sex: Male

DRUGS (2)
  1. TALVEY [Suspect]
     Active Substance: TALQUETAMAB-TGVS
     Indication: Product used for unknown indication
     Dosage: FIRST STEP UP DOSE
     Route: 065
     Dates: start: 202403
  2. TALVEY [Suspect]
     Active Substance: TALQUETAMAB-TGVS
     Dosage: SECOND STEP UP DOSE
     Route: 065
     Dates: start: 202403

REACTIONS (2)
  - Subdural haematoma [Unknown]
  - Immune effector cell-associated neurotoxicity syndrome [Unknown]

NARRATIVE: CASE EVENT DATE: 20240301
